FAERS Safety Report 15521997 (Version 1)
Quarter: 2018Q4

REPORT INFORMATION
  Report Type: Spontaneous
  Country: US (occurrence: US)
  Receive Date: 20181012
  Receipt Date: 20181012
  Transmission Date: 20190205
  Serious: Yes (Other)
  Sender: FDA-Public Use
  Company Number: None

PATIENT
  Age: 48 Year
  Sex: Male
  Weight: 86.18 kg

DRUGS (1)
  1. SOMADERM GEL (HOMEOPATHICS) [Suspect]
     Active Substance: HOMEOPATHICS
     Route: 061
     Dates: start: 20180826, end: 20181005

REACTIONS (4)
  - Fatigue [None]
  - Bradyphrenia [None]
  - Drug ineffective [None]
  - Insomnia [None]

NARRATIVE: CASE EVENT DATE: 20181005
